FAERS Safety Report 6969455-2 (Version None)
Quarter: 2010Q3

REPORT INFORMATION
  Report Type: 
  Country: None (occurrence: None)
  Receive Date: 20100902
  Receipt Date: 20100824
  Transmission Date: 20110219
  Serious: Yes (Hospitalization)
  Sender: FDA-Public Use
  Company Number: CIP09001007

PATIENT
  Age: 82 Year
  Sex: Female

DRUGS (7)
  1. ACTONEL [Suspect]
     Dosage: 35MG ONCE DAILY, ORAL
     Route: 048
     Dates: start: 20080620, end: 20100313
  2. ANTIINFLAMATORY/ANTIRHEUMATIC PRODUCTS [Concomitant]
  3. METOPROLOL SUCCINATE [Concomitant]
  4. NEBUMETONE [Concomitant]
  5. FISH OIL [Concomitant]
  6. ALLOPURINOL [Concomitant]
  7. VITAMIN D [Concomitant]

REACTIONS (13)
  - ARTHRALGIA [None]
  - ARTHROPATHY [None]
  - CALCINOSIS [None]
  - CONDITION AGGRAVATED [None]
  - ERYTHEMA [None]
  - FALL [None]
  - GOUT [None]
  - JOINT STIFFNESS [None]
  - MUSCULAR WEAKNESS [None]
  - MUSCULOSKELETAL STIFFNESS [None]
  - OEDEMA PERIPHERAL [None]
  - PAIN [None]
  - PAIN IN EXTREMITY [None]
